FAERS Safety Report 15932520 (Version 1)
Quarter: 2019Q1

REPORT INFORMATION
  Report Type: Spontaneous
  Country: US (occurrence: US)
  Receive Date: 20190117
  Receipt Date: 20190117
  Transmission Date: 20190417
  Serious: Yes (Life-Threatening, Disabling)
  Sender: FDA-Public Use
  Company Number: None

PATIENT
  Age: 65 Year
  Sex: Male
  Weight: 87.09 kg

DRUGS (1)
  1. COPAXONE [Suspect]
     Active Substance: GLATIRAMER ACETATE
     Indication: MULTIPLE SCLEROSIS
     Dosage: ?          QUANTITY:40 MG/ML - MILLLIGRAMS PER MILLILITRES;?
     Route: 058
     Dates: start: 2000, end: 20181214

REACTIONS (5)
  - Injection site bruising [None]
  - Burning sensation [None]
  - Abdominal pain upper [None]
  - Injection site erythema [None]
  - Back pain [None]

NARRATIVE: CASE EVENT DATE: 20181214
